FAERS Safety Report 6976322-7 (Version None)
Quarter: 2010Q3

REPORT INFORMATION
  Report Type: 
  Country: None (occurrence: None)
  Receive Date: 20100910
  Receipt Date: 20100901
  Transmission Date: 20110219
  Serious: Yes (Death, Hospitalization)
  Sender: FDA-Public Use
  Company Number: US-PFIZER INC-2010111219

PATIENT
  Sex: Male

DRUGS (3)
  1. NORVASC [Suspect]
     Indication: HYPERTENSION
     Dosage: 5 MG, DAILY
  2. ARICEPT [Concomitant]
     Dosage: UNK
  3. CARDIZEM [Concomitant]

REACTIONS (3)
  - DEATH [None]
  - DRUG PRESCRIBING ERROR [None]
  - FALL [None]
